FAERS Safety Report 7425718 (Version 7)
Quarter: 2013Q1

REPORT INFORMATION
  Report Type: Spontaneous
  Country: US (occurrence: US)
  Receive Date: 20100621
  Receipt Date: 20130207
  Transmission Date: 20140127
  Serious: No
  Sender: FDA-Public Use
  Company Number: US-BIOGENIDEC-2006BI005503

PATIENT
  Sex: Male
  Weight: 90 kg

DRUGS (3)
  1. TYSABRI [Suspect]
     Indication: MULTIPLE SCLEROSIS
     Route: 042
     Dates: start: 200501, end: 200501
  2. TYSABRI [Suspect]
     Indication: MULTIPLE SCLEROSIS
     Route: 042
     Dates: start: 20050210, end: 20050210
  3. TYSABRI [Suspect]
     Indication: MULTIPLE SCLEROSIS
     Route: 042
     Dates: start: 20061121, end: 20120702

REACTIONS (7)
  - Central nervous system lesion [Unknown]
  - Gait disturbance [Recovered/Resolved]
  - Balance disorder [Not Recovered/Not Resolved]
  - Poor venous access [Recovered/Resolved]
  - Asthenia [Recovered/Resolved]
  - Rash macular [Recovered/Resolved]
  - Antibody test positive [Unknown]
